FAERS Safety Report 10462389 (Version 2)
Quarter: 2014Q3

REPORT INFORMATION
  Report Type: Spontaneous
  Country: JP (occurrence: JP)
  Receive Date: 20140918
  Receipt Date: 20140918
  Transmission Date: 20150326
  Serious: Yes (Other)
  Sender: FDA-Public Use
  Company Number: PHHY2014JP111433

PATIENT
  Age: 84 Year
  Sex: Female

DRUGS (1)
  1. RIVASTIGMIN [Suspect]
     Active Substance: RIVASTIGMINE
     Dosage: UNK UKN, UNK
     Route: 062

REACTIONS (5)
  - Insomnia [Unknown]
  - Disease progression [Unknown]
  - Application site reaction [Unknown]
  - Mini mental status examination abnormal [Unknown]
  - Delusion [Unknown]
